FAERS Safety Report 15603932 (Version 1)
Quarter: 2018Q4

REPORT INFORMATION
  Report Type: Report from Study
  Country: US (occurrence: US)
  Receive Date: 20181109
  Receipt Date: 20181109
  Transmission Date: 20190205
  Serious: Yes (Hospitalization, Other)
  Sender: FDA-Public Use
  Company Number: US-ALEXION PHARMACEUTICALS INC.-A201814559

PATIENT
  Sex: Female

DRUGS (1)
  1. SOLIRIS [Suspect]
     Active Substance: ECULIZUMAB
     Indication: ATYPICAL HAEMOLYTIC URAEMIC SYNDROME
     Dosage: UNK
     Route: 042
     Dates: start: 20181014

REACTIONS (22)
  - Mean cell volume decreased [Unknown]
  - Blood urea increased [Unknown]
  - Pneumonia [Unknown]
  - Haematocrit decreased [Unknown]
  - Vaginal haemorrhage [Unknown]
  - White blood cell count increased [Unknown]
  - Mean cell haemoglobin concentration decreased [Unknown]
  - Platelet count increased [Unknown]
  - Blood chloride increased [Unknown]
  - Glomerular filtration rate decreased [Unknown]
  - Serum ferritin increased [Unknown]
  - Haemoglobin decreased [Unknown]
  - Mean platelet volume decreased [Unknown]
  - Red cell distribution width increased [Unknown]
  - Blood lactate dehydrogenase increased [Unknown]
  - Red blood cell count decreased [Unknown]
  - Blood creatinine increased [Unknown]
  - Blood glucose increased [Unknown]
  - Thrombocytosis [Unknown]
  - Respiratory failure [Unknown]
  - Mean cell haemoglobin decreased [Unknown]
  - Blood calcium decreased [Unknown]

NARRATIVE: CASE EVENT DATE: 201810
